FAERS Safety Report 24628545 (Version 1)
Quarter: 2024Q4

REPORT INFORMATION
  Report Type: Report from Study
  Country: US (occurrence: US)
  Receive Date: 20241117
  Receipt Date: 20241117
  Transmission Date: 20250115
  Serious: Yes (Other)
  Sender: ABBVIE
  Company Number: US-ABBVIE-5999615

PATIENT
  Age: 74 Year
  Sex: Male
  Weight: 81 kg

DRUGS (1)
  1. RINVOQ [Suspect]
     Active Substance: UPADACITINIB
     Indication: Colitis ulcerative
     Route: 048
     Dates: start: 20230902

REACTIONS (1)
  - Foot deformity [Unknown]

NARRATIVE: CASE EVENT DATE: 20240729
